FAERS Safety Report 21988084 (Version 2)
Quarter: 2023Q2

REPORT INFORMATION
  Report Type: Spontaneous
  Country: US (occurrence: None)
  Receive Date: 20230214
  Receipt Date: 20230407
  Transmission Date: 20230722
  Serious: Yes (Other)
  Sender: FDA-Public Use
  Company Number: 2023A031906

PATIENT
  Age: 26129 Day
  Sex: Female
  Weight: 79.4 kg

DRUGS (1)
  1. BREZTRI [Suspect]
     Active Substance: BUDESONIDE\FORMOTEROL\GLYCOPYRROLATE
     Indication: Chronic obstructive pulmonary disease
     Dosage: 2 PUFFS TWICE DAILY
     Route: 055
     Dates: start: 20230103

REACTIONS (5)
  - Dyspnoea [Unknown]
  - Product dose omission issue [Unknown]
  - Device use issue [Unknown]
  - Device delivery system issue [Not Recovered/Not Resolved]
  - Product label issue [Unknown]

NARRATIVE: CASE EVENT DATE: 20230103
